FAERS Safety Report 18536732 (Version 2)
Quarter: 2020Q4

REPORT INFORMATION
  Report Type: Report from Study
  Country: GB (occurrence: GB)
  Receive Date: 20201123
  Receipt Date: 20201221
  Transmission Date: 20210114
  Serious: Yes (Hospitalization, Other)
  Sender: FDA-Public Use
  Company Number: NVSC2020GB308695

PATIENT
  Sex: Female

DRUGS (3)
  1. SANDOSTATIN LAR DEPOT [Suspect]
     Active Substance: OCTREOTIDE ACETATE
     Indication: NEUROENDOCRINE TUMOUR
     Dosage: 30 MG, QMO
     Route: 030
     Dates: start: 201810
  2. SANDOSTATIN LAR DEPOT [Suspect]
     Active Substance: OCTREOTIDE ACETATE
  3. SANDOSTATIN LAR DEPOT [Suspect]
     Active Substance: OCTREOTIDE ACETATE

REACTIONS (10)
  - Malaise [Unknown]
  - Nervousness [Unknown]
  - Abdominal discomfort [Unknown]
  - Pyrexia [Unknown]
  - Feeding disorder [Unknown]
  - Nausea [Unknown]
  - Pneumonia [Unknown]
  - Gallbladder rupture [Unknown]
  - Renal impairment [Unknown]
  - Micturition disorder [Unknown]

NARRATIVE: CASE EVENT DATE: 202011
